FAERS Safety Report 4340336-6 (Version None)
Quarter: 2004Q2

REPORT INFORMATION
  Report Type: 
  Country: None (occurrence: None)
  Receive Date: 20040402
  Receipt Date: 20040322
  Transmission Date: 20050107
  Serious: Yes (Other)
  Sender: FDA-Public Use
  Company Number: 601178

PATIENT
  Age: 11 Year
  Sex: Female

DRUGS (3)
  1. GAMMAGARD S/D [Suspect]
     Indication: DERMATOMYOSITIS
     Dosage: 30 GM; INTRAVENOUS
     Route: 042
     Dates: start: 20040105, end: 20040105
  2. PREDNISOLONE [Concomitant]
  3. METHOTREXATE [Concomitant]

REACTIONS (2)
  - BLOOD PRESSURE INCREASED [None]
  - MENINGITIS ASEPTIC [None]
